FAERS Safety Report 9684146 (Version 1)
Quarter: 2013Q4

REPORT INFORMATION
  Report Type: Spontaneous
  Country: US (occurrence: None)
  Receive Date: 20131111
  Receipt Date: 20131111
  Transmission Date: 20140711
  Serious: No
  Sender: FDA-Public Use
  Company Number: None

PATIENT
  Age: 67 Year
  Sex: Female
  Weight: 81.65 kg

DRUGS (1)
  1. MIRVASO [Suspect]
     Indication: ROSACEA
     Dosage: APPLY TO THE SKIN TOPICALL AS NEEDED
     Route: 061
     Dates: start: 20131107, end: 20131108

REACTIONS (7)
  - Urticaria [None]
  - Erythema [None]
  - Burning sensation [None]
  - Paraesthesia [None]
  - Lip swelling [None]
  - Eye swelling [None]
  - Feeling hot [None]
